FAERS Safety Report 25236467 (Version 3)
Quarter: 2025Q2

REPORT INFORMATION
  Report Type: Spontaneous
  Country: JP (occurrence: JP)
  Receive Date: 20250424
  Receipt Date: 20250627
  Transmission Date: 20250717
  Serious: No
  Sender: ASTELLAS
  Company Number: JP-ASTELLAS-2025-AER-022254

PATIENT
  Age: 24 Year
  Sex: Male
  Weight: 69 kg

DRUGS (2)
  1. PROGRAF [Suspect]
     Active Substance: TACROLIMUS
     Indication: Colitis ulcerative
     Route: 065
  2. PROGRAF [Suspect]
     Active Substance: TACROLIMUS
     Dosage: 0.05MG/KG
     Route: 048
     Dates: start: 20250421

REACTIONS (2)
  - Product use issue [Unknown]
  - Off label use [Unknown]

NARRATIVE: CASE EVENT DATE: 20250421
